FAERS Safety Report 24883085 (Version 3)
Quarter: 2025Q1

REPORT INFORMATION
  Report Type: Report from Study
  Country: US (occurrence: US)
  Receive Date: 20250124
  Receipt Date: 20250326
  Transmission Date: 20250409
  Serious: Yes (Hospitalization, Other)
  Sender: ALEXION PHARMACEUTICALS
  Company Number: US-AstraZeneca-CH-00790053A

PATIENT

DRUGS (3)
  1. ULTOMIRIS [Suspect]
     Active Substance: RAVULIZUMAB-CWVZ
     Indication: Myasthenia gravis
  2. PENICILLIN [Suspect]
     Active Substance: PENICILLIN
     Indication: Urinary tract infection
  3. PENICILLIN [Suspect]
     Active Substance: PENICILLIN

REACTIONS (6)
  - Stevens-Johnson syndrome [Unknown]
  - Vancomycin infusion reaction [Unknown]
  - Diabetes mellitus [Unknown]
  - Urinary tract infection [Unknown]
  - Drug hypersensitivity [Unknown]
  - Poor venous access [Unknown]
